FAERS Safety Report 8712051 (Version 3)
Quarter: 2013Q1

REPORT INFORMATION
  Report Type: Spontaneous
  Country: US (occurrence: US)
  Receive Date: 20120807
  Receipt Date: 20130103
  Transmission Date: 20140127
  Serious: Yes (Hospitalization, Other)
  Sender: FDA-Public Use
  Company Number: PHHY2012US066768

PATIENT
  Age: 90 Year
  Sex: Male

DRUGS (3)
  1. AMIODARONE [Suspect]
     Dosage: 200 MG, UNK
  2. AMIODARONE [Suspect]
     Dosage: 100 MG, UNK
  3. DIGOXIN [Concomitant]

REACTIONS (9)
  - Myoclonus [Recovered/Resolved]
  - Gait disturbance [Recovered/Resolved]
  - Dyskinesia [Recovered/Resolved]
  - Arrhythmia [Recovered/Resolved]
  - Hyperreflexia [Recovered/Resolved]
  - Decreased vibratory sense [Recovered/Resolved]
  - Tremor [Recovered/Resolved]
  - Dysstasia [Recovered/Resolved]
  - Hypoacusis [Recovered/Resolved]
